FAERS Safety Report 9301277 (Version 1)
Quarter: 2013Q2

REPORT INFORMATION
  Report Type: Spontaneous
  Country: IT (occurrence: IT)
  Receive Date: 20130521
  Receipt Date: 20130521
  Transmission Date: 20140414
  Serious: Yes (Other)
  Sender: FDA-Public Use
  Company Number: IT-GLAXOSMITHKLINE-B0893347A

PATIENT
  Age: 81 Year
  Sex: Male

DRUGS (2)
  1. EUTIMIL [Suspect]
     Indication: DEMENTIA
     Route: 065
     Dates: start: 20130101, end: 20130426
  2. SEROQUEL [Concomitant]
     Indication: DEMENTIA
     Route: 048
     Dates: start: 20130101, end: 20130426

REACTIONS (1)
  - Coma [Recovered/Resolved]
